FAERS Safety Report 5335928-1 (Version None)
Quarter: 2007Q1

REPORT INFORMATION
  Report Type: 
  Country: None (occurrence: None)
  Receive Date: 20070301
  Receipt Date: 20070126
  Transmission Date: 20070707
  Serious: Yes (Hospitalization)
  Sender: FDA-Public Use
  Company Number: 150449USA

PATIENT
  Age: 80 Year
  Sex: Female
  Weight: 52.1637 kg

DRUGS (2)
  1. AZILECT [Suspect]
     Indication: PARKINSON'S DISEASE
     Dosage: 0.5 MG
     Dates: start: 20061115, end: 20061126
  2. ROPINIROLE HCL [Suspect]
     Indication: PARKINSON'S DISEASE
     Dosage: 9.75 MG (3.25 MG, 3 IN 1 D)
     Dates: start: 20060101

REACTIONS (4)
  - CONTUSION [None]
  - FALL [None]
  - HALLUCINATION [None]
  - SYNCOPE [None]
